FAERS Safety Report 25150636 (Version 1)
Quarter: 2025Q2

REPORT INFORMATION
  Report Type: Spontaneous
  Country: US (occurrence: None)
  Receive Date: 20250401
  Receipt Date: 20250401
  Transmission Date: 20250717
  Serious: Yes (unspecified)
  Sender: FDA-CTU
  Company Number: None

PATIENT
  Age: 55 Year
  Sex: Female
  Weight: 58.5 kg

DRUGS (3)
  1. STEM CELL EXOSOME GROWTH FACTOR DERIVED OTC PRODUCTS [Suspect]
     Active Substance: STEM CELL EXOSOME GROWTH FACTOR DERIVED OTC PRODUCTS
     Indication: Skin disorder
     Dates: start: 20250301, end: 20250315
  2. VITAMINS [Concomitant]
     Active Substance: VITAMINS
  3. RAPAMYCIN [Suspect]
     Active Substance: SIROLIMUS

REACTIONS (4)
  - Erythema [None]
  - Pruritus [None]
  - Skin exfoliation [None]
  - Skin exfoliation [None]

NARRATIVE: CASE EVENT DATE: 20250315
